FAERS Safety Report 4870158-9 (Version None)
Quarter: 2005Q4

REPORT INFORMATION
  Report Type: 
  Country: None (occurrence: None)
  Receive Date: 20051228
  Receipt Date: 20051215
  Transmission Date: 20060501
  Serious: Yes (Hospitalization)
  Sender: FDA-Public Use
  Company Number: ES200512003877

PATIENT
  Age: 60 Year
  Sex: Male

DRUGS (1)
  1. CIALIS [Suspect]
     Indication: PSYCHOSEXUAL DISORDER
     Dosage: 20 MG, OTHER, ORAL
     Route: 048
     Dates: start: 20051014, end: 20051014

REACTIONS (1)
  - LARYNGEAL OEDEMA [None]
